FAERS Safety Report 14310230 (Version 1)
Quarter: 2017Q4

REPORT INFORMATION
  Report Type: Spontaneous
  Country: US (occurrence: US)
  Receive Date: 20171220
  Receipt Date: 20171220
  Transmission Date: 20180321
  Serious: Yes (Other)
  Sender: FDA-Public Use
  Company Number: PHEH2017US040450

PATIENT
  Age: 76 Year
  Sex: Male

DRUGS (2)
  1. VIMPAT [Suspect]
     Active Substance: LACOSAMIDE
     Indication: SEIZURE
     Dosage: 150 MG, BID
     Route: 065
     Dates: start: 201706
  2. TEGRETOL [Suspect]
     Active Substance: CARBAMAZEPINE
     Indication: SEIZURE
     Dosage: UNK
     Route: 065

REACTIONS (8)
  - Polymyalgia rheumatica [Unknown]
  - Osteoarthritis [Unknown]
  - Tenosynovitis [Recovering/Resolving]
  - Myalgia [Unknown]
  - Pain in extremity [Unknown]
  - Tendon pain [Unknown]
  - Arthralgia [Unknown]
  - Gastrointestinal disorder [Unknown]
